APPROVED DRUG PRODUCT: BRONKOSOL
Active Ingredient: ISOETHARINE HYDROCHLORIDE
Strength: 0.25%
Dosage Form/Route: SOLUTION;INHALATION
Application: N012339 | Product #009
Applicant: SANOFI AVENTIS US LLC
Approved: Approved Prior to Jan 1, 1982 | RLD: No | RS: No | Type: DISCN